FAERS Safety Report 8197722-6 (Version None)
Quarter: 2012Q1

REPORT INFORMATION
  Report Type: 
  Country: None (occurrence: None)
  Receive Date: 20120309
  Receipt Date: 20120301
  Transmission Date: 20120608
  Serious: Yes (Hospitalization)
  Sender: FDA-Public Use
  Company Number: AT-B.I. PHARMACEUTICALS,INC./RIDGEFIELD-2009-AP-00387AP

PATIENT
  Sex: Female

DRUGS (4)
  1. TENOFOVIR DISOPROXIL FUMARATE [Concomitant]
     Indication: HIV INFECTION
     Dates: start: 20090701
  2. TRUVADA [Concomitant]
     Indication: HIV INFECTION
     Dosage: 200/245MG
     Route: 048
     Dates: start: 20090721
  3. VIRAMUNE [Suspect]
     Indication: HIV INFECTION
     Dosage: 200 MG
     Route: 048
     Dates: start: 20090721, end: 20090730
  4. EMTRICITABIN [Concomitant]
     Indication: HIV INFECTION
     Dates: start: 20090701

REACTIONS (12)
  - PYREXIA [None]
  - ENANTHEMA [None]
  - C-REACTIVE PROTEIN INCREASED [None]
  - PANCREATITIS [None]
  - LYMPHADENOPATHY [None]
  - CHOLECYSTITIS [None]
  - DRUG HYPERSENSITIVITY [None]
  - RASH MACULO-PAPULAR [None]
  - LIVER FUNCTION TEST ABNORMAL [None]
  - ABDOMINAL PAIN UPPER [None]
  - MALAISE [None]
  - ERYTHEMA MULTIFORME [None]
